FAERS Safety Report 5089871-6 (Version None)
Quarter: 2006Q3

REPORT INFORMATION
  Report Type: 
  Country: None (occurrence: None)
  Receive Date: 20060727
  Receipt Date: 20060518
  Transmission Date: 20061208
  Serious: Yes (Other)
  Sender: FDA-Public Use
  Company Number: 2006066154

PATIENT
  Age: 76 Year
  Sex: Female
  Weight: 87.5442 kg

DRUGS (9)
  1. LYRICA [Suspect]
     Indication: BURNING SENSATION
     Dosage: (50 MG)
     Dates: start: 20060516, end: 20060516
  2. LYRICA [Suspect]
     Indication: FIBROMYALGIA
     Dosage: (50 MG)
     Dates: start: 20060516, end: 20060516
  3. VALSARTAN [Concomitant]
  4. LISINOPRIL [Concomitant]
  5. FUROSEMIDE [Concomitant]
  6. DILTIAZEM [Concomitant]
  7. WARFARIN SODIUM [Concomitant]
  8. AMBIEN [Concomitant]
  9. VALIUM [Concomitant]

REACTIONS (3)
  - ARTHROPATHY [None]
  - BLOOD PRESSURE INCREASED [None]
  - DIZZINESS [None]
